FAERS Safety Report 7224895-1 (Version None)
Quarter: 2011Q1

REPORT INFORMATION
  Report Type: 
  Country: None (occurrence: None)
  Receive Date: 20110113
  Receipt Date: 20101222
  Transmission Date: 20110831
  Serious: Yes (Other)
  Sender: FDA-Public Use
  Company Number: GB-SANOFI-AVENTIS-2010SA077657

PATIENT
  Age: 71 Year
  Sex: Female
  Weight: 89 kg

DRUGS (5)
  1. FERROUS SULFATE [Concomitant]
  2. DIGOXIN [Concomitant]
  3. MULTAQ [Suspect]
     Route: 048
  4. OMEPRAZOLE [Concomitant]
  5. MULTAQ [Suspect]
     Route: 048
     Dates: start: 20100810

REACTIONS (8)
  - UNDERDOSE [None]
  - NIGHT SWEATS [None]
  - HYPERHIDROSIS [None]
  - PALPITATIONS [None]
  - ATRIAL FIBRILLATION [None]
  - GOUT [None]
  - FEELING HOT [None]
  - SLEEP DISORDER [None]
